FAERS Safety Report 6640249-0 (Version None)
Quarter: 2010Q1

REPORT INFORMATION
  Report Type: 
  Country: None (occurrence: None)
  Receive Date: 20100318
  Receipt Date: 20100309
  Transmission Date: 20100710
  Serious: Yes (Other)
  Sender: FDA-Public Use
  Company Number: US-BAYER-201012936BCC

PATIENT
  Age: 49 Year
  Sex: Male
  Weight: 71 kg

DRUGS (2)
  1. ASPIRIN [Suspect]
     Indication: ISCHAEMIC HEART DISEASE PROPHYLAXIS
     Dosage: UNIT DOSE: 81 MG
     Route: 048
     Dates: start: 20090101
  2. LIPITOR [Concomitant]

REACTIONS (1)
  - HAEMATOCHEZIA [None]
